FAERS Safety Report 5620920-X (Version None)
Quarter: 2008Q1

REPORT INFORMATION
  Report Type: 
  Country: None (occurrence: None)
  Receive Date: 20080208
  Receipt Date: 20080204
  Transmission Date: 20080703
  Serious: No
  Sender: FDA-Public Use
  Company Number: AU-PFIZER INC-2008008579

PATIENT

DRUGS (1)
  1. NELFINAVIR MESILATE [Suspect]
     Indication: HIV INFECTION

REACTIONS (1)
  - NO ADVERSE EVENT [None]
